FAERS Safety Report 4527010-8 (Version None)
Quarter: 2004Q4

REPORT INFORMATION
  Report Type: 
  Country: None (occurrence: None)
  Receive Date: 20041213
  Receipt Date: 20041202
  Transmission Date: 20050328
  Serious: Yes (Life-Threatening, Hospitalization, Other)
  Sender: FDA-Public Use
  Company Number: 2004102815

PATIENT
  Age: 56 Year
  Sex: Male

DRUGS (11)
  1. ZYRTEC [Suspect]
     Indication: ILL-DEFINED DISORDER
     Dosage: 10 MG (1 IN 1 D), ORAL
     Route: 048
     Dates: end: 20041017
  2. LOSARTAN (LOSARTAN0 [Concomitant]
  3. ROSIGLIAZONE (ROSIGLITAZONE) [Concomitant]
  4. ASPIRIN [Concomitant]
  5. DILTIAZEM [Concomitant]
  6. PRAVASTATIN [Concomitant]
  7. PYRIDOXINE (PYRIDOXINE) [Concomitant]
  8. LISINOPRIL (LISONOPRIL) [Concomitant]
  9. METFORMIN (METFORMIN) [Concomitant]
  10. ALLOPURINOL [Concomitant]
  11. DIPYRIDAMOLE [Concomitant]

REACTIONS (4)
  - CARDIAC ARREST [None]
  - CARDIAC FAILURE CONGESTIVE [None]
  - ELECTROCARDIOGRAM QT CORRECTED INTERVAL PROLONGED [None]
  - LOWER RESPIRATORY TRACT INFECTION [None]
